FAERS Safety Report 24735815 (Version 1)
Quarter: 2024Q4

REPORT INFORMATION
  Report Type: Spontaneous
  Country: BR (occurrence: BR)
  Receive Date: 20241216
  Receipt Date: 20241216
  Transmission Date: 20250115
  Serious: Yes (Other)
  Sender: NOVO NORDISK
  Company Number: BR-NOVOPROD-1331137

PATIENT
  Age: 765 Month
  Sex: Female

DRUGS (1)
  1. WEGOVY [Suspect]
     Active Substance: SEMAGLUTIDE
     Indication: Product used for unknown indication
     Dosage: UNK

REACTIONS (4)
  - Device malfunction [Unknown]
  - Product packaging issue [Unknown]
  - Device leakage [Unknown]
  - Product storage error [Unknown]

NARRATIVE: CASE EVENT DATE: 20241021
